FAERS Safety Report 10451378 (Version 1)
Quarter: 2014Q3

REPORT INFORMATION
  Report Type: Spontaneous
  Country: BR (occurrence: BR)
  Receive Date: 20140912
  Receipt Date: 20140912
  Transmission Date: 20150326
  Serious: Yes (Hospitalization)
  Sender: FDA-Public Use
  Company Number: US-ASTRAZENECA-2014SE67669

PATIENT
  Age: 1 Year
  Sex: Female
  Weight: 10.1 kg

DRUGS (8)
  1. SPIRONOLACTONE. [Concomitant]
     Active Substance: SPIRONOLACTONE
     Indication: HEART DISEASE CONGENITAL
     Route: 050
  2. LEVOTHYROXINE SODIUM. [Concomitant]
     Active Substance: LEVOTHYROXINE SODIUM
     Indication: HYPOTHYROIDISM
     Dosage: UNSPECIFIED DOSE EVERY DAY
     Route: 050
  3. FUROSEMIDE. [Concomitant]
     Active Substance: FUROSEMIDE
     Indication: HEART DISEASE CONGENITAL
     Dosage: UNSPECIFIED DOSE TWO TIMES A DAY
     Route: 050
  4. HYDROCHLOROTHIAZIDE. [Concomitant]
     Active Substance: HYDROCHLOROTHIAZIDE
     Indication: HEART DISEASE CONGENITAL
     Route: 050
  5. SIMETHICONE [Concomitant]
     Active Substance: DIMETHICONE\SILICON DIOXIDE\SIMETHICONE
     Indication: FLATULENCE
     Dosage: AS NEEDED THREE TIMES A DAY
     Route: 050
  6. PALIVIZUMAB [Suspect]
     Active Substance: PALIVIZUMAB
     Indication: HEART DISEASE CONGENITAL
     Route: 030
     Dates: start: 20140620
  7. PHENOBARBITAL. [Concomitant]
     Active Substance: PHENOBARBITAL
     Indication: PRODUCT USED FOR UNKNOWN INDICATION
     Route: 050
  8. CAPTOPRIL. [Concomitant]
     Active Substance: CAPTOPRIL
     Indication: HEART DISEASE CONGENITAL
     Dosage: UNSPECIFIED DOSE THREE TIMES A DAY
     Route: 050

REACTIONS (2)
  - Bronchiolitis [Not Recovered/Not Resolved]
  - Anaemia [Unknown]

NARRATIVE: CASE EVENT DATE: 20140710
